FAERS Safety Report 13093003 (Version 1)
Quarter: 2017Q1

REPORT INFORMATION
  Report Type: Spontaneous
  Country: US (occurrence: US)
  Receive Date: 20170105
  Receipt Date: 20170105
  Transmission Date: 20170428
  Serious: Yes (Hospitalization)
  Sender: FDA-Public Use
  Company Number: None

PATIENT
  Age: 58 Year
  Sex: Female
  Weight: 73.9 kg

DRUGS (1)
  1. SUMATRIPTAN. [Suspect]
     Active Substance: SUMATRIPTAN
     Indication: MIGRAINE
     Dosage: MG PO
     Route: 048
     Dates: start: 20151201, end: 20160615

REACTIONS (3)
  - Gastric haemorrhage [None]
  - Colitis ischaemic [None]
  - Haemorrhage [None]

NARRATIVE: CASE EVENT DATE: 20160615
